FAERS Safety Report 6622020-9 (Version None)
Quarter: 2010Q1

REPORT INFORMATION
  Report Type: 
  Country: None (occurrence: None)
  Receive Date: 20100304
  Receipt Date: 20100222
  Transmission Date: 20100710
  Serious: Yes (Hospitalization)
  Sender: FDA-Public Use
  Company Number: B0636576A

PATIENT
  Age: 33 Year
  Sex: Male
  Weight: 67.8581 kg

DRUGS (9)
  1. ZIDOVUDINE [Suspect]
     Indication: HIV INFECTION
     Dates: start: 19981001
  2. LAMIVUDINE [Suspect]
     Indication: HIV INFECTION
     Dates: start: 19991001
  3. DIDANOSINE [Suspect]
     Indication: HIV INFECTION
     Dates: start: 19981001
  4. SAQUINAVIR (FORMULATION UNKNOWN) (SAQUINAVIR) [Suspect]
     Indication: HIV INFECTION
     Dates: start: 19981201
  5. STAVUDINE [Suspect]
     Indication: HIV INFECTION
     Dates: start: 19991001
  6. NELFINAVIR MESYLATE [Suspect]
     Indication: HIV INFECTION
  7. EFAVIRENZ [Suspect]
     Indication: HIV INFECTION
     Dates: start: 20020101
  8. LOPINAVIR AND RITONAVIR [Suspect]
     Indication: HIV INFECTION
     Dates: start: 20030301
  9. TENOFOVIR DISOPROXIL FUMARATE [Suspect]
     Indication: HIV INFECTION
     Dates: start: 20030301

REACTIONS (3)
  - DRUG INTOLERANCE [None]
  - OSTEONECROSIS [None]
  - TREATMENT FAILURE [None]
